FAERS Safety Report 8442807-X (Version None)
Quarter: 2012Q2

REPORT INFORMATION
  Report Type: 
  Country: None (occurrence: None)
  Receive Date: 20120615
  Receipt Date: 20120605
  Transmission Date: 20120825
  Serious: No
  Sender: FDA-Public Use
  Company Number: US-B.I. PHARMACEUTICALS,INC./RIDGEFIELD-2012-BP-13207BP

PATIENT
  Sex: Male

DRUGS (2)
  1. MULTAQ [Suspect]
  2. PRADAXA [Suspect]

REACTIONS (4)
  - HAEMATOMA [None]
  - ERYTHEMA [None]
  - SWELLING [None]
  - ECCHYMOSIS [None]
